FAERS Safety Report 4546908-8 (Version None)
Quarter: 2005Q1

REPORT INFORMATION
  Report Type: 
  Country: None (occurrence: None)
  Receive Date: 20050105
  Receipt Date: 20041217
  Transmission Date: 20050727
  Serious: Yes (Life-Threatening, Other)
  Sender: FDA-Public Use
  Company Number: JP_041205387

PATIENT
  Age: 62 Year
  Sex: Female
  Weight: 45 kg

DRUGS (10)
  1. ZYPREXA [Suspect]
     Indication: SCHIZOPHRENIA
     Dosage: 15 MG DAY
     Dates: start: 20040611, end: 20041013
  2. HALOMONTH (HALOPERIDOL DECANOATE) [Concomitant]
  3. RISPERDAL [Concomitant]
  4. GASTROMET (CIMETIDINE) [Concomitant]
  5. AKINETON [Concomitant]
  6. ASPARA K (ASPARTATE POTASSIUM) [Concomitant]
  7. AMINOVACT [Concomitant]
  8. FLUNITRAZEPAM [Concomitant]
  9. METROMIN [Concomitant]
  10. SENNOSIDE A+B [Concomitant]

REACTIONS (22)
  - APNOEA [None]
  - BLOOD PRESSURE INCREASED [None]
  - CARDIAC FAILURE ACUTE [None]
  - CARDIAC VENTRICULAR DISORDER [None]
  - DELUSION [None]
  - DEPRESSED LEVEL OF CONSCIOUSNESS [None]
  - DIASTOLIC DYSFUNCTION [None]
  - DIET REFUSAL [None]
  - DYSPNOEA [None]
  - GAZE PALSY [None]
  - HAEMATEMESIS [None]
  - HYPERHIDROSIS [None]
  - HYPERTENSION [None]
  - HYPONATRAEMIA [None]
  - HYPOXIA [None]
  - NEUROLEPTIC MALIGNANT SYNDROME [None]
  - OXYGEN SATURATION DECREASED [None]
  - POLYDIPSIA [None]
  - PULMONARY OEDEMA [None]
  - RESPIRATORY DEPRESSION [None]
  - STRIDOR [None]
  - WHITE BLOOD CELL COUNT DECREASED [None]
